FAERS Safety Report 20946245 (Version 1)
Quarter: 2022Q2

REPORT INFORMATION
  Report Type: Spontaneous
  Country: US (occurrence: None)
  Receive Date: 20220610
  Receipt Date: 20220610
  Transmission Date: 20220721
  Serious: Yes (Hospitalization)
  Sender: FDA-Public Use
  Company Number: None

PATIENT
  Age: 69 Year
  Sex: Male
  Weight: 81.4 kg

DRUGS (1)
  1. CAMPTOSAR [Suspect]
     Active Substance: IRINOTECAN HYDROCHLORIDE
     Dates: start: 20211207, end: 20211207

REACTIONS (5)
  - Fatigue [None]
  - Appetite disorder [None]
  - Pain [None]
  - Muscle spasms [None]
  - Constipation [None]

NARRATIVE: CASE EVENT DATE: 20211213
